FAERS Safety Report 14310825 (Version 1)
Quarter: 2017Q4

REPORT INFORMATION
  Report Type: Spontaneous
  Country: US (occurrence: US)
  Receive Date: 20171220
  Receipt Date: 20171220
  Transmission Date: 20180321
  Serious: Yes (Other)
  Sender: FDA-Public Use
  Company Number: US-ROCHE-2041822

PATIENT
  Age: 57 Year
  Sex: Male

DRUGS (1)
  1. OCREVUS [Suspect]
     Active Substance: OCRELIZUMAB
     Indication: MULTIPLE SCLEROSIS
     Dosage: INFUSIONS ON 27/JUN AND 13/JUL (YEAR NOT SPECIFIED)
     Route: 065

REACTIONS (2)
  - Coma [Not Recovered/Not Resolved]
  - Cardiac arrest [Unknown]
